FAERS Safety Report 8276087-5 (Version None)
Quarter: 2012Q2

REPORT INFORMATION
  Report Type: 
  Country: None (occurrence: None)
  Receive Date: 20120412
  Receipt Date: 20120402
  Transmission Date: 20120825
  Serious: Yes (Other)
  Sender: FDA-Public Use
  Company Number: US-SANOFI-AVENTIS-2012SA023088

PATIENT

DRUGS (2)
  1. ALL OTHER THERAPEUTIC PRODUCTS [Suspect]
  2. PLAVIX [Suspect]

REACTIONS (1)
  - BLADDER CANCER [None]
